FAERS Safety Report 7033294-7 (Version None)
Quarter: 2010Q4

REPORT INFORMATION
  Report Type: 
  Country: None (occurrence: None)
  Receive Date: 20101007
  Receipt Date: 20100927
  Transmission Date: 20110411
  Serious: Yes (Hospitalization)
  Sender: FDA-Public Use
  Company Number: B0657907A

PATIENT
  Sex: Female

DRUGS (5)
  1. COMBIVIR [Suspect]
     Indication: HIV INFECTION
     Dosage: 1TAB TWICE PER DAY
     Route: 048
     Dates: start: 20100114
  2. KALETRA [Suspect]
     Indication: HIV INFECTION
     Dosage: 400MG TWICE PER DAY
     Route: 048
     Dates: start: 20100114, end: 20100316
  3. TARDYFERON [Concomitant]
     Dosage: 1UNIT PER DAY
     Route: 048
     Dates: start: 20100114, end: 20100316
  4. LEDERFOLINE [Concomitant]
     Dosage: 1UNIT PER DAY
     Route: 048
     Dates: start: 20100114, end: 20100316
  5. GAVISCON [Concomitant]
     Route: 048

REACTIONS (3)
  - CYTOLYTIC HEPATITIS [None]
  - DRUG EXPOSURE DURING PREGNANCY [None]
  - LIVE BIRTH [None]
